FAERS Safety Report 22240719 (Version 1)
Quarter: 2023Q2

REPORT INFORMATION
  Report Type: Spontaneous
  Country: US (occurrence: None)
  Receive Date: 20230421
  Receipt Date: 20230421
  Transmission Date: 20230722
  Serious: Yes (unspecified)
  Sender: FDA-Public Use
  Company Number: None

PATIENT
  Sex: Male
  Weight: 65.3 kg

DRUGS (5)
  1. NEXTERONE [Interacting]
     Active Substance: AMIODARONE HYDROCHLORIDE
     Dosage: CONTINUOUS INTRAVENOUS DRIP ?
     Route: 041
  2. PRAVASTATIN [Concomitant]
     Active Substance: PRAVASTATIN
  3. DILTIAZEM [Concomitant]
     Active Substance: DILTIAZEM
  4. HEPARIN [Concomitant]
     Active Substance: HEPARIN SODIUM
     Dates: start: 20230413, end: 20230414
  5. ASPIRIN [Concomitant]
     Active Substance: ASPIRIN

REACTIONS (3)
  - Dyspnoea [None]
  - Product quality issue [None]
  - Infusion related reaction [None]

NARRATIVE: CASE EVENT DATE: 20230414
